FAERS Safety Report 20253541 (Version 3)
Quarter: 2022Q1

REPORT INFORMATION
  Report Type: Report from Study
  Country: CN (occurrence: CN)
  Receive Date: 20211230
  Receipt Date: 20220111
  Transmission Date: 20220423
  Serious: Yes (Other)
  Sender: FDA-Public Use
  Company Number: CN-NOVARTISPH-NVSC2020CN092471

PATIENT
  Age: 59 Year
  Sex: Male

DRUGS (23)
  1. ENTRESTO [Suspect]
     Active Substance: SACUBITRIL\VALSARTAN
     Indication: Cardiac failure chronic
     Dosage: 25 MG
     Route: 048
     Dates: start: 20200122, end: 20200124
  2. ENTRESTO [Suspect]
     Active Substance: SACUBITRIL\VALSARTAN
     Dosage: 50 MG
     Route: 048
     Dates: start: 20200125, end: 20200131
  3. ENTRESTO [Suspect]
     Active Substance: SACUBITRIL\VALSARTAN
     Dosage: 25 MG
     Route: 048
     Dates: start: 20200201, end: 20200322
  4. ENTRESTO [Suspect]
     Active Substance: SACUBITRIL\VALSARTAN
     Dosage: 50 MG
     Route: 048
     Dates: start: 20200323, end: 20200330
  5. ENTRESTO [Suspect]
     Active Substance: SACUBITRIL\VALSARTAN
     Dosage: 75 MG
     Route: 048
     Dates: start: 20200331, end: 20200331
  6. ENTRESTO [Suspect]
     Active Substance: SACUBITRIL\VALSARTAN
     Dosage: 100 MG
     Route: 048
     Dates: start: 20200401, end: 20210122
  7. DABIGATRAN [Concomitant]
     Active Substance: DABIGATRAN
     Indication: Cardiac failure
     Dosage: 1 DOSAGE FORM (ESTER)
     Route: 048
     Dates: start: 20200131, end: 202002
  8. DABIGATRAN [Concomitant]
     Active Substance: DABIGATRAN
     Dosage: 110 MG
     Route: 048
     Dates: start: 20200323, end: 20200323
  9. DIGOXIN [Concomitant]
     Active Substance: DIGOXIN
     Indication: Cardiac failure
     Dosage: 0.125 MG
     Route: 048
     Dates: start: 20200117, end: 20200215
  10. DIGOXIN [Concomitant]
     Active Substance: DIGOXIN
     Dosage: 0.125 MG
     Route: 048
     Dates: start: 20200323, end: 20200422
  11. METOPROLOL [Concomitant]
     Active Substance: METOPROLOL
     Indication: Cardiac failure
     Dosage: 142.5 MG (METOPROLOL SUSTAINED-RELEASE TABLETS)
     Route: 048
     Dates: start: 20200323, end: 20200324
  12. METOPROLOL [Concomitant]
     Active Substance: METOPROLOL
     Dosage: 190 MG
     Route: 048
     Dates: start: 20200325, end: 20200331
  13. METOPROLOL [Concomitant]
     Active Substance: METOPROLOL
     Dosage: 142.5 MG
     Route: 048
     Dates: start: 20200123, end: 20200228
  14. FUROSEMIDE [Concomitant]
     Active Substance: FUROSEMIDE
     Indication: Cardiac failure
     Dosage: 20 MG
     Route: 048
     Dates: start: 20200119, end: 20200301
  15. FUROSEMIDE [Concomitant]
     Active Substance: FUROSEMIDE
     Indication: Pre-existing disease
     Dosage: 20 MG
     Route: 048
     Dates: start: 20200323, end: 20200716
  16. ENOXAPARIN SODIUM [Concomitant]
     Active Substance: ENOXAPARIN SODIUM
     Indication: Cardiac failure
     Dosage: 4000 AXAIU
     Route: 058
     Dates: start: 20200116, end: 20200131
  17. ENOXAPARIN SODIUM [Concomitant]
     Active Substance: ENOXAPARIN SODIUM
     Dosage: 4000 AXAIU
     Route: 042
     Dates: start: 20200323, end: 20200401
  18. FUROSEMIDE [Concomitant]
     Active Substance: FUROSEMIDE
     Indication: Cardiac failure
     Dosage: 20 MG
     Route: 042
     Dates: start: 20200323, end: 20200325
  19. FUROSEMIDE [Concomitant]
     Active Substance: FUROSEMIDE
     Dosage: 20 MG
     Route: 042
     Dates: start: 20200326, end: 20200407
  20. BISOPROLOL [Concomitant]
     Active Substance: BISOPROLOL
     Indication: Cardiac failure
     Dosage: 10 MG
     Route: 048
     Dates: start: 20200331, end: 20200403
  21. PANTOPRAZOLE SODIUM [Concomitant]
     Active Substance: PANTOPRAZOLE SODIUM
     Indication: Pre-existing disease
     Dosage: 40 MG (ENTERIC)
     Route: 048
     Dates: start: 20200131, end: 20200228
  22. POTASSIUM CHLORIDE [Concomitant]
     Active Substance: POTASSIUM CHLORIDE
     Indication: Mineral supplementation
     Dosage: 1 DOSAGE FORM (SUSTAINED RELEASE)
     Route: 048
     Dates: start: 20200117, end: 20200131
  23. TICAGRELOR [Concomitant]
     Active Substance: TICAGRELOR
     Indication: Cardiac failure
     Dosage: 90 MG
     Route: 048
     Dates: start: 20200122, end: 20200122

REACTIONS (12)
  - Pulmonary arterial hypertension [Not Recovered/Not Resolved]
  - Hypokalaemia [Recovering/Resolving]
  - Blood glucose increased [Unknown]
  - Benign prostatic hyperplasia [Unknown]
  - Amylase decreased [Unknown]
  - Blood uric acid increased [Unknown]
  - Tachypnoea [Recovered/Resolved]
  - Hepatic cyst [Not Recovered/Not Resolved]
  - Hepatic steatosis [Not Recovered/Not Resolved]
  - Hyperuricaemia [Recovering/Resolving]
  - Wrong technique in product usage process [Not Recovered/Not Resolved]
  - Incorrect dose administered [Not Recovered/Not Resolved]

NARRATIVE: CASE EVENT DATE: 20200122
